FAERS Safety Report 8395337-8 (Version None)
Quarter: 2012Q2

REPORT INFORMATION
  Report Type: 
  Country: None (occurrence: None)
  Receive Date: 20120530
  Receipt Date: 20120517
  Transmission Date: 20120825
  Serious: Yes (Hospitalization, Other)
  Sender: FDA-Public Use
  Company Number: JP-VERTEX PHARMACEUTICALS INC.-AE-2012-005300

PATIENT
  Age: 66 Year
  Sex: Male

DRUGS (45)
  1. REBETOL [Concomitant]
     Route: 048
     Dates: start: 20120302, end: 20120325
  2. FAMOTIDINE [Concomitant]
     Route: 048
     Dates: start: 20120425, end: 20120517
  3. ZOLPIDEM [Concomitant]
     Route: 048
     Dates: start: 20120216, end: 20120229
  4. SOLITA-T NO.1 [Concomitant]
     Dates: start: 20120227, end: 20120330
  5. ATARAX [Concomitant]
     Route: 051
     Dates: start: 20120324, end: 20120324
  6. REBETOL [Concomitant]
     Route: 048
     Dates: start: 20120222, end: 20120301
  7. PEGINTERFERON ALFA-2B [Concomitant]
     Indication: HEPATITIS C
     Route: 058
     Dates: start: 20120215, end: 20120323
  8. PLAVIX [Concomitant]
     Route: 048
     Dates: start: 20120425, end: 20120517
  9. BIO-THREE [Concomitant]
     Route: 048
     Dates: start: 20120210, end: 20120211
  10. ACETAMINOPHEN [Concomitant]
     Route: 048
     Dates: start: 20120224, end: 20120308
  11. DIOVAN [Concomitant]
     Route: 048
     Dates: start: 20120502, end: 20120517
  12. URSO 250 [Concomitant]
     Route: 048
     Dates: start: 20120425, end: 20120517
  13. TELAVIC (TELAPREVIR) [Suspect]
     Route: 048
     Dates: start: 20120222, end: 20120325
  14. BISOPROLOL FUMARATE [Concomitant]
     Route: 048
     Dates: start: 20120425, end: 20120517
  15. GASMOTIN [Concomitant]
     Route: 048
     Dates: start: 20120219, end: 20120419
  16. GASMOTIN [Concomitant]
     Route: 048
     Dates: start: 20120425, end: 20120517
  17. SOLITA-T NO. 3 [Concomitant]
     Dates: start: 20120226, end: 20120227
  18. AMLODIPINE BESYLATE [Concomitant]
     Route: 048
     Dates: start: 20120502, end: 20120517
  19. BISOPROLOL FUMARATE [Concomitant]
     Route: 048
     Dates: start: 20120210, end: 20120419
  20. EXFORGE [Concomitant]
     Route: 048
     Dates: start: 20120210, end: 20120222
  21. PEGASYS [Concomitant]
     Route: 058
     Dates: start: 20120215, end: 20120215
  22. DOGMATYL [Concomitant]
     Route: 048
     Dates: start: 20120310, end: 20120328
  23. HIRUDOID [Concomitant]
     Route: 061
     Dates: start: 20120413, end: 20120419
  24. FUCIDIN LEO [Concomitant]
     Route: 061
     Dates: start: 20120413, end: 20120419
  25. ASPIRIN [Concomitant]
     Route: 048
     Dates: start: 20120210, end: 20120419
  26. ZADITEN [Concomitant]
     Route: 031
     Dates: start: 20120314, end: 20120320
  27. DIOVAN [Concomitant]
     Route: 048
     Dates: end: 20120419
  28. ALLOPURINOL [Concomitant]
     Route: 048
     Dates: start: 20120225, end: 20120429
  29. REFLEX [Concomitant]
     Route: 048
     Dates: start: 20120323, end: 20120328
  30. REBETOL [Concomitant]
     Indication: HEPATITIS C
     Route: 048
     Dates: start: 20120215, end: 20120221
  31. PLAVIX [Concomitant]
     Route: 048
     Dates: start: 20120210, end: 20120419
  32. PURSENNID [Concomitant]
     Route: 048
     Dates: start: 20120215, end: 20120228
  33. LENDORMIN [Concomitant]
     Route: 048
     Dates: start: 20120323, end: 20120405
  34. ASPIRIN [Concomitant]
     Route: 048
     Dates: start: 20120425, end: 20120517
  35. EXFORGE [Concomitant]
     Route: 048
     Dates: start: 20120425, end: 20120515
  36. KENEI G [Concomitant]
     Route: 054
     Dates: start: 20120222, end: 20120228
  37. ACETAMINOPHEN [Concomitant]
     Route: 048
     Dates: start: 20120329, end: 20120411
  38. MEDICON [Concomitant]
     Route: 048
     Dates: start: 20120417, end: 20120419
  39. TELAVIC (TELAPREVIR) [Suspect]
     Indication: HEPATITIS C
     Route: 048
     Dates: start: 20120215, end: 20120221
  40. AMLODIPINE BESYLATE [Concomitant]
     Route: 048
     Dates: end: 20120419
  41. FAMOTIDINE [Concomitant]
     Route: 048
     Dates: start: 20120210, end: 20120419
  42. HYALEIN [Concomitant]
     Route: 031
     Dates: start: 20120314, end: 20120320
  43. ADOFEED [Concomitant]
     Route: 061
     Dates: start: 20120316, end: 20120325
  44. LOXONIN [Concomitant]
     Route: 061
     Dates: start: 20120322, end: 20120328
  45. ATARAX [Concomitant]
     Route: 051
     Dates: start: 20120424, end: 20120424

REACTIONS (4)
  - ANAEMIA [None]
  - HYPERURICAEMIA [None]
  - DEPRESSION [None]
  - RENAL DISORDER [None]
